FAERS Safety Report 9549083 (Version 1)
Quarter: 2013Q3

REPORT INFORMATION
  Report Type: Spontaneous
  Country: BR (occurrence: BR)
  Receive Date: 20130924
  Receipt Date: 20130924
  Transmission Date: 20140515
  Serious: Yes (Hospitalization)
  Sender: FDA-Public Use
  Company Number: BR-ASTRAZENECA-2013SE69784

PATIENT
  Age: 65 Year
  Sex: Female
  Weight: 66 kg

DRUGS (4)
  1. ATACAND HCT [Suspect]
     Indication: HYPERTENSION
     Dosage: 16/ 12.5 MG, DAILY
     Route: 048
  2. NEXIUM [Suspect]
     Indication: GASTRITIS
     Route: 048
  3. SELOZOK [Suspect]
     Indication: HYPERTENSION
     Route: 048
  4. MONOCORDIL [Concomitant]
     Indication: CARDIAC DISORDER
     Dosage: DAILY

REACTIONS (3)
  - Device occlusion [Unknown]
  - Gastritis [Recovered/Resolved]
  - Off label use [Not Recovered/Not Resolved]
